FAERS Safety Report 14843743 (Version 2)
Quarter: 2018Q2

REPORT INFORMATION
  Report Type: Report from Study
  Country: US (occurrence: US)
  Receive Date: 20180503
  Receipt Date: 20180515
  Transmission Date: 20180711
  Serious: Yes (Hospitalization)
  Sender: FDA-Public Use
  Company Number: US-ACTELION-A-US2016-144113

PATIENT
  Age: 52 Year
  Sex: Female

DRUGS (17)
  1. OPSUMIT [Suspect]
     Active Substance: MACITENTAN
     Indication: PULMONARY ARTERIAL HYPERTENSION
     Dosage: UNK
     Route: 048
     Dates: start: 20160614
  2. TIZANIDINE HCL [Concomitant]
     Active Substance: TIZANIDINE HYDROCHLORIDE
  3. AZITHROMYCIN ANHYDROUS. [Concomitant]
     Active Substance: AZITHROMYCIN ANHYDROUS
  4. WARFARIN [Concomitant]
     Active Substance: WARFARIN
  5. FLONASE [Concomitant]
     Active Substance: FLUTICASONE PROPIONATE
  6. MELATONIN [Concomitant]
     Active Substance: MELATONIN
  7. AMBIEN [Concomitant]
     Active Substance: ZOLPIDEM TARTRATE
  8. ZOLPIDEM [Concomitant]
     Active Substance: ZOLPIDEM\ZOLPIDEM TARTRATE
  9. POTASSIUM [Concomitant]
     Active Substance: POTASSIUM
  10. ZAROXOLYN [Concomitant]
     Active Substance: METOLAZONE
  11. OXYCODONE AND ACETAMINOPHEN [Concomitant]
     Active Substance: ACETAMINOPHEN\OXYCODONE HYDROCHLORIDE
  12. FLUTICASONE PROPIONATE. [Concomitant]
     Active Substance: FLUTICASONE PROPIONATE
  13. ALBUTEROL. [Concomitant]
     Active Substance: ALBUTEROL
  14. LEXAPRO [Concomitant]
     Active Substance: ESCITALOPRAM OXALATE
  15. ALLOPURINOL. [Concomitant]
     Active Substance: ALLOPURINOL
  16. SPIRONOLACTONE. [Concomitant]
     Active Substance: SPIRONOLACTONE
  17. ADCIRCA [Concomitant]
     Active Substance: TADALAFIL

REACTIONS (14)
  - Cough [Recovered/Resolved with Sequelae]
  - Dyspnoea [Recovered/Resolved with Sequelae]
  - Oxygen saturation abnormal [Recovered/Resolved with Sequelae]
  - Skin discolouration [Not Recovered/Not Resolved]
  - Pneumonia bacterial [Recovered/Resolved with Sequelae]
  - Occult blood positive [Unknown]
  - Renal failure [Not Recovered/Not Resolved]
  - Gout [Unknown]
  - Medication error [Unknown]
  - Upper respiratory tract infection [Unknown]
  - Influenza [Recovered/Resolved with Sequelae]
  - Eustachian tube disorder [Unknown]
  - Non-cardiac chest pain [Recovered/Resolved with Sequelae]
  - Bronchitis [Recovered/Resolved]

NARRATIVE: CASE EVENT DATE: 20160614
